FAERS Safety Report 8588560-0 (Version None)
Quarter: 2012Q3

REPORT INFORMATION
  Report Type: 
  Country: None (occurrence: None)
  Receive Date: 20120813
  Receipt Date: 20120808
  Transmission Date: 20120928
  Serious: Yes (Other)
  Sender: FDA-Public Use
  Company Number: US-JNJFOC-20120803614

PATIENT

DRUGS (4)
  1. EVICEL [Suspect]
     Indication: HAEMOSTASIS
     Route: 061
  2. ALL OTHER THERAPEUTIC PRODUCT [Suspect]
     Indication: HAEMOSTASIS
     Route: 061
  3. EVICEL [Suspect]
     Indication: TISSUE SEALING
     Route: 061
  4. ALL OTHER THERAPEUTIC PRODUCT [Suspect]
     Indication: TISSUE SEALING
     Route: 061

REACTIONS (4)
  - INTRACRANIAL HYPOTENSION [None]
  - OFF LABEL USE [None]
  - SPINAL OPERATION [None]
  - LIQUID PRODUCT PHYSICAL ISSUE [None]
